FAERS Safety Report 5258156-7 (Version None)
Quarter: 2007Q1

REPORT INFORMATION
  Report Type: 
  Country: None (occurrence: None)
  Receive Date: 20070307
  Receipt Date: 20070223
  Transmission Date: 20070707
  Serious: Yes (Other)
  Sender: FDA-Public Use
  Company Number: FR-PFIZER INC-2007015405

PATIENT
  Age: 62 Year
  Sex: Male

DRUGS (10)
  1. LYRICA [Suspect]
     Indication: DIABETIC NEUROPATHY
  2. INSULIN [Concomitant]
  3. GLUCOPHAGE [Concomitant]
  4. ANAFRANIL [Concomitant]
  5. LOXEN [Concomitant]
  6. SECTRAL [Concomitant]
  7. TRIATEC [Concomitant]
  8. PREVISCAN [Concomitant]
  9. MOPRAL [Concomitant]
  10. CRESTOR [Concomitant]

REACTIONS (3)
  - AGGRESSION [None]
  - AGITATION [None]
  - HALLUCINATION [None]
